FAERS Safety Report 10079033 (Version 1)
Quarter: 2014Q2

REPORT INFORMATION
  Report Type: Spontaneous
  Country: FR (occurrence: FR)
  Receive Date: 20140415
  Receipt Date: 20140415
  Transmission Date: 20141212
  Serious: Yes (Hospitalization)
  Sender: FDA-Public Use
  Company Number: FR-SA-2014SA044647

PATIENT
  Age: 67 Year
  Sex: Female

DRUGS (10)
  1. STILNOX [Suspect]
     Indication: PRODUCT USED FOR UNKNOWN INDICATION
     Route: 048
     Dates: start: 20140121, end: 20140121
  2. OXYNORM [Concomitant]
  3. OMEPRAZOLE [Concomitant]
  4. SPASFON [Concomitant]
  5. BIPERIDYS [Concomitant]
  6. LOVENOX [Concomitant]
  7. ACUPAN [Concomitant]
  8. ZOFRAN [Concomitant]
  9. LEVOTHYROX [Concomitant]
  10. 5-FU [Concomitant]
     Dates: start: 20140120

REACTIONS (3)
  - Haematoma [Recovering/Resolving]
  - Feeling drunk [Recovering/Resolving]
  - Fall [Recovering/Resolving]
